FAERS Safety Report 12991110 (Version 1)
Quarter: 2016Q4

REPORT INFORMATION
  Report Type: Spontaneous
  Country: US (occurrence: US)
  Receive Date: 20161130
  Receipt Date: 20161130
  Transmission Date: 20170207
  Serious: Yes (Other)
  Sender: FDA-Public Use
  Company Number: None

PATIENT
  Age: 59 Year
  Sex: Male
  Weight: 108 kg

DRUGS (11)
  1. LACOSAMIDE. [Concomitant]
     Active Substance: LACOSAMIDE
  2. LAMOTRIGINE. [Concomitant]
     Active Substance: LAMOTRIGINE
  3. PHENOBARBITAL. [Concomitant]
     Active Substance: PHENOBARBITAL
  4. LOSARTAN. [Concomitant]
     Active Substance: LOSARTAN
  5. VALPROIC ACID. [Concomitant]
     Active Substance: VALPROIC ACID
  6. RISPERIDONE. [Suspect]
     Active Substance: RISPERIDONE
     Indication: INTERMITTENT EXPLOSIVE DISORDER
     Route: 048
  7. SIMVASTATIN. [Concomitant]
     Active Substance: SIMVASTATIN
  8. LEVETIRACETAM. [Concomitant]
     Active Substance: LEVETIRACETAM
  9. VITAMIN D [Concomitant]
     Active Substance: CHOLECALCIFEROL
  10. LACTULOSE. [Concomitant]
     Active Substance: LACTULOSE
  11. HCTZ [Concomitant]
     Active Substance: HYDROCHLOROTHIAZIDE

REACTIONS (3)
  - Syncope [None]
  - Electrocardiogram QT prolonged [None]
  - Skin abrasion [None]

NARRATIVE: CASE EVENT DATE: 20160702
